FAERS Safety Report 25104318 (Version 1)
Quarter: 2025Q1

REPORT INFORMATION
  Report Type: Spontaneous
  Country: US (occurrence: None)
  Receive Date: 20250320
  Receipt Date: 20250320
  Transmission Date: 20250409
  Serious: No
  Sender: FDA-CTU
  Company Number: None

PATIENT
  Age: 46 Year
  Sex: Female

DRUGS (1)
  1. CIMZIA [Suspect]
     Active Substance: CERTOLIZUMAB PEGOL
     Indication: Psoriatic arthropathy
     Dosage: INJECT 400MG(2 VIALS) SUBCUTANEOUSLY EVERY 4  WEEKS AS DIRECTED.
     Route: 058
     Dates: start: 202502

REACTIONS (1)
  - Conversion disorder [None]
